FAERS Safety Report 5234500-1 (Version None)
Quarter: 2007Q1

REPORT INFORMATION
  Report Type: 
  Country: None (occurrence: None)
  Receive Date: 20070208
  Receipt Date: 20070208
  Transmission Date: 20070707
  Serious: Yes (Disabling)
  Sender: FDA-Public Use
  Company Number: None

PATIENT
  Age: 28 Year
  Sex: Female
  Weight: 53.6 kg

DRUGS (1)
  1. MEPERIDINE HCL [Suspect]
     Indication: PAIN
     Dosage: 30MG Q8MIN PRN INJ
     Dates: start: 20061211, end: 20061212

REACTIONS (7)
  - BLOOD PRESSURE INCREASED [None]
  - BODY TEMPERATURE INCREASED [None]
  - CONVULSION [None]
  - CONVULSIVE THRESHOLD LOWERED [None]
  - EMOTIONAL DISORDER [None]
  - HEART RATE INCREASED [None]
  - LOSS OF CONSCIOUSNESS [None]
